FAERS Safety Report 7218152-7 (Version None)
Quarter: 2011Q1

REPORT INFORMATION
  Report Type: 
  Country: None (occurrence: None)
  Receive Date: 20110110
  Receipt Date: 20110103
  Transmission Date: 20110831
  Serious: Yes (Other)
  Sender: FDA-Public Use
  Company Number: US-CEPHALON-2010004045

PATIENT
  Sex: Female

DRUGS (2)
  1. AMRIX [Suspect]
     Indication: INTERVERTEBRAL DISC PROTRUSION
     Route: 048
     Dates: start: 20100709, end: 20100715
  2. PREDNISONE [Concomitant]
     Indication: INTERVERTEBRAL DISC PROTRUSION
     Dates: start: 20100709, end: 20100713

REACTIONS (4)
  - GAIT DISTURBANCE [None]
  - DIZZINESS [None]
  - DYSPNOEA [None]
  - ACTIVITIES OF DAILY LIVING IMPAIRED [None]
